FAERS Safety Report 23578487 (Version 1)
Quarter: 2024Q1

REPORT INFORMATION
  Report Type: Report from Study
  Country: CA (occurrence: CA)
  Receive Date: 20240229
  Receipt Date: 20240229
  Transmission Date: 20240409
  Serious: Yes (Other)
  Sender: FDA-Public Use
  Company Number: CA-SAMSUNG BIOEPIS-SB-2024-05803

PATIENT
  Age: 66 Year
  Sex: Female

DRUGS (2)
  1. HADLIMA [Suspect]
     Active Substance: ADALIMUMAB-BWWD
     Indication: Rheumatoid arthritis
     Dosage: 40 MG/ 0.8 ML
     Route: 065
     Dates: start: 20230927
  2. HADLIMA [Suspect]
     Active Substance: ADALIMUMAB-BWWD
     Route: 065
     Dates: start: 20240221

REACTIONS (10)
  - Peripheral artery occlusion [Not Recovered/Not Resolved]
  - Rheumatoid arthritis [Not Recovered/Not Resolved]
  - Vascular graft occlusion [Not Recovered/Not Resolved]
  - Peripheral artery bypass [Unknown]
  - Asthma [Unknown]
  - Iliac artery occlusion [Not Recovered/Not Resolved]
  - Drug ineffective [Not Recovered/Not Resolved]
  - Ocular hyperaemia [Unknown]
  - Fall [Unknown]
  - Knee deformity [Recovering/Resolving]

NARRATIVE: CASE EVENT DATE: 20231001
